FAERS Safety Report 20757768 (Version 1)
Quarter: 2022Q2

REPORT INFORMATION
  Report Type: Spontaneous
  Country: GE (occurrence: GE)
  Receive Date: 20220427
  Receipt Date: 20220427
  Transmission Date: 20220720
  Serious: Yes (Death)
  Sender: FDA-Public Use
  Company Number: GE-NOVARTISPH-NVSC2022GE096908

PATIENT
  Sex: Male

DRUGS (1)
  1. GLIVEC [Suspect]
     Active Substance: IMATINIB MESYLATE
     Indication: Gastrointestinal stromal tumour
     Dosage: 400 MG, (4 X 100MG TABLETS)
     Route: 065

REACTIONS (2)
  - Neoplasm malignant [Fatal]
  - Second primary malignancy [Fatal]
